FAERS Safety Report 4673065-X (Version None)
Quarter: 2005Q2

REPORT INFORMATION
  Report Type: 
  Country: None (occurrence: None)
  Receive Date: 20050523
  Receipt Date: 20050421
  Transmission Date: 20051028
  Serious: Yes (Other)
  Sender: FDA-Public Use
  Company Number: B0378984A

PATIENT
  Age: 58 Year
  Sex: Female

DRUGS (1)
  1. TEMOVATE [Suspect]
     Indication: RASH PAPULAR
     Dosage: TOPICAL
     Route: 061
     Dates: start: 20020101

REACTIONS (8)
  - DERMATITIS [None]
  - FLUSHING [None]
  - PRURITUS [None]
  - REFUSAL OF TREATMENT BY PATIENT [None]
  - ROSACEA [None]
  - SKIN ATROPHY [None]
  - THERAPY NON-RESPONDER [None]
  - VASODILATATION [None]
